FAERS Safety Report 24363141 (Version 1)
Quarter: 2024Q3

REPORT INFORMATION
  Report Type: Report from Study
  Country: CN (occurrence: CN)
  Receive Date: 20240925
  Receipt Date: 20240925
  Transmission Date: 20241017
  Serious: Yes (Life-Threatening, Hospitalization)
  Sender: SANDOZ
  Company Number: CN-BEIGENE-BGN-2024-014251

PATIENT
  Age: 69 Year
  Sex: Male
  Weight: 44.5 kg

DRUGS (5)
  1. CAPECITABINE [Suspect]
     Active Substance: CAPECITABINE
     Indication: Oesophageal adenocarcinoma
     Dosage: 1000 MG/M2, BID
     Route: 048
     Dates: start: 20240808, end: 20240831
  2. OXALIPLATIN [Suspect]
     Active Substance: OXALIPLATIN
     Indication: Oesophageal adenocarcinoma
     Dosage: 196 MG/M2, Q3W
     Route: 040
     Dates: start: 20240808, end: 20240829
  3. TISLELIZUMAB [Suspect]
     Active Substance: TISLELIZUMAB
     Indication: Oesophageal adenocarcinoma
     Dosage: 200 MG, Q3W
     Route: 040
     Dates: start: 20240808, end: 20240829
  4. ZANIDATAMAB [Suspect]
     Active Substance: ZANIDATAMAB
     Indication: Oesophageal adenocarcinoma
     Dosage: 1800 MG, Q3W
     Route: 040
     Dates: start: 20240808, end: 20240829
  5. LOPERAMIDE [Concomitant]
     Active Substance: LOPERAMIDE
     Indication: Prophylaxis
     Dosage: 4 MG, BID
     Route: 048
     Dates: start: 20240808

REACTIONS (1)
  - Diarrhoea [Recovered/Resolved]

NARRATIVE: CASE EVENT DATE: 20240831
